FAERS Safety Report 7707207-6 (Version None)
Quarter: 2011Q3

REPORT INFORMATION
  Report Type: 
  Country: None (occurrence: None)
  Receive Date: 20110824
  Receipt Date: 20110809
  Transmission Date: 20111222
  Serious: Yes (Other)
  Sender: FDA-Public Use
  Company Number: PHHY2011BR72475

PATIENT
  Sex: Male

DRUGS (9)
  1. CRESTOR [Concomitant]
     Dosage: 10 MG, UNK
  2. CITTA [Concomitant]
     Dosage: 20 MG, UNK
  3. METFORMIN HYDROCHLORIDE [Concomitant]
  4. PLAVIX [Concomitant]
     Dosage: 75 MG, UNK
  5. DIVELOL [Concomitant]
     Dosage: 25 MG, UNK
  6. DIOVAN HCT [Suspect]
     Dosage: 1 DF(160/12.5)
     Route: 048
     Dates: start: 20100901
  7. LERCANIDIPINE [Concomitant]
     Dosage: 10 MG, UNK
  8. CLONIDINE HYDROCHLORIDE [Concomitant]
     Dosage: 0.1 MG, UNK
  9. OLCADIL [Concomitant]
     Dosage: 2 MG, UNK

REACTIONS (3)
  - TOOTH DECALCIFICATION [None]
  - HYPERTENSION [None]
  - LABORATORY TEST ABNORMAL [None]
